FAERS Safety Report 23919435 (Version 2)
Quarter: 2024Q3

REPORT INFORMATION
  Report Type: Spontaneous
  Country: FR (occurrence: FR)
  Receive Date: 20240530
  Receipt Date: 20240729
  Transmission Date: 20241017
  Serious: Yes (Other)
  Sender: ASTELLAS
  Company Number: FR-ASTELLAS-2024US012926

PATIENT
  Age: 81 Year
  Sex: Male

DRUGS (5)
  1. XTANDI [Suspect]
     Active Substance: ENZALUTAMIDE
     Indication: Hormone-dependent prostate cancer
     Route: 065
     Dates: start: 20240413, end: 20240509
  2. XTANDI [Suspect]
     Active Substance: ENZALUTAMIDE
     Route: 065
     Dates: start: 20240510
  3. ENALAPRIL [Concomitant]
     Active Substance: ENALAPRIL
     Indication: Hypertension
     Dosage: 5 MG, ONCE DAILY (IN THE MORNING)
     Route: 065
  4. PINAVERIUM BROMIDE [Concomitant]
     Active Substance: PINAVERIUM BROMIDE
     Indication: Product used for unknown indication
     Dosage: 100 MG, OCCASIONALLY
     Route: 065
  5. ELIGARD [Concomitant]
     Active Substance: LEUPROLIDE ACETATE
     Indication: Prostate cancer
     Dosage: UNK UNK, UNKNOWN FREQ.
     Route: 065
     Dates: start: 20240308

REACTIONS (9)
  - Malignant neoplasm progression [Not Recovered/Not Resolved]
  - Hot flush [Not Recovered/Not Resolved]
  - Swelling face [Recovering/Resolving]
  - Lip swelling [Recovering/Resolving]
  - Speech disorder [Recovering/Resolving]
  - Headache [Not Recovered/Not Resolved]
  - Hypertension [Recovered/Resolved]
  - Platelet count decreased [Not Recovered/Not Resolved]
  - Off label use [Unknown]

NARRATIVE: CASE EVENT DATE: 20240401
